FAERS Safety Report 25239698 (Version 2)
Quarter: 2025Q2

REPORT INFORMATION
  Report Type: Spontaneous
  Country: US (occurrence: CA)
  Receive Date: 20250425
  Receipt Date: 20250612
  Transmission Date: 20250716
  Serious: Yes (Other)
  Sender: TEVA
  Company Number: US-TEVA-VS-3323960

PATIENT
  Age: 72 Year
  Sex: Female

DRUGS (14)
  1. DICLOFENAC [Suspect]
     Active Substance: DICLOFENAC
     Dosage: EC, 75MG, TAKE 1 TABLET BY MOUTH EVERY DAY
     Route: 048
  2. DICLOFENAC [Concomitant]
     Active Substance: DICLOFENAC
     Indication: Product used for unknown indication
     Dosage: APPLY (2G) BY TOPICAL ROUTE 2 TIMES EVERY DAY TO THE AFFECTED AREA(S)
     Route: 061
  3. TRAMADOL HCL [Suspect]
     Active Substance: TRAMADOL HYDROCHLORIDE
     Indication: Product used for unknown indication
     Dosage: TAKE 1 TABLET BY MOUTH TWICE A DAY AS NEEDED
     Route: 048
  4. TRAMADOL HCL [Suspect]
     Active Substance: TRAMADOL HYDROCHLORIDE
     Indication: Product used for unknown indication
     Route: 048
  5. LEFLUNOMIDE [Suspect]
     Active Substance: LEFLUNOMIDE
     Indication: Rheumatoid arthritis
     Dosage: TAKE 1 TABLET BY ORAL ROUTE EVERY DAY
     Route: 048
  6. LEVOTHYROXINE [Concomitant]
     Active Substance: LEVOTHYROXINE
     Indication: Product used for unknown indication
     Dosage: TAKE 1 TABLET BY ORAL ROUTE EVERY DAY
     Route: 048
  7. TRIAMTERENE AND HYDROCHLOROTHIAZIDE [Concomitant]
     Active Substance: HYDROCHLOROTHIAZIDE\TRIAMTERENE
     Indication: Product used for unknown indication
     Dosage: TRIAMTERENE 37.5 MG-HYDROCHLOROTHIAZIDE 25 MG TABLET, TAKE 1 TABLET BY ORAL ROUTE EVERY DAY
     Route: 048
  8. STOOL SOFTENER (DOCUSATE) [Concomitant]
     Active Substance: DOCUSATE
     Indication: Product used for unknown indication
     Dosage: TAKE 1 CAPSULE BY ORAL ROUTE EVERY DAY AT BEDTIME AS NEEDED
     Route: 048
  9. LOSARTAN POTASSIUM [Suspect]
     Active Substance: LOSARTAN POTASSIUM
     Indication: Product used for unknown indication
     Dosage: TAKE 1 TABLET BY ORAL ROUTE EVERY DAY
     Route: 048
  10. ROSUVASTATIN [Concomitant]
     Active Substance: ROSUVASTATIN
     Indication: Product used for unknown indication
     Dosage: TAKE 1 TABLET BY ORAL ROUTE EVERY DAY
     Route: 048
  11. VITAMIN D3 [Concomitant]
     Active Substance: CHOLECALCIFEROL
     Indication: Product used for unknown indication
     Dosage: 25 MCG (1,000 UNIT), TAKE 3 CAPSULE BY ORAL ROUTE EVERY DAY
     Route: 048
  12. TYLENOL [Concomitant]
     Active Substance: ACETAMINOPHEN
     Indication: Analgesic therapy
  13. XELJANZ [Suspect]
     Active Substance: TOFACITINIB CITRATE
     Indication: Rheumatoid arthritis
     Dosage: TAKE 1 TABLET BY MOUTH DAILY AS DIRECTED BY PHYSICIAN.
     Route: 048
     Dates: start: 2017
  14. OMEPRAZOLE [Concomitant]
     Active Substance: OMEPRAZOLE
     Indication: Product used for unknown indication
     Dosage: CAPSULE, DELAYED RELEASE, TAKE 1 CAPSULE BY ORAL ROUTE EVERY DAY BEFORE A MEAL
     Route: 048

REACTIONS (33)
  - Glomerular filtration rate decreased [Unknown]
  - Nerve compression [Unknown]
  - Pain in extremity [Unknown]
  - Dry mouth [Unknown]
  - Tinnitus [Unknown]
  - Pain in jaw [Unknown]
  - Disease recurrence [Unknown]
  - Blood creatinine increased [Not Recovered/Not Resolved]
  - Disease progression [Unknown]
  - Paraesthesia [Unknown]
  - Tachycardia [Unknown]
  - Inflammatory marker increased [Unknown]
  - Feeling abnormal [Unknown]
  - Neck pain [Unknown]
  - Hypoaesthesia [Unknown]
  - Hypersensitivity [Unknown]
  - Arthralgia [Unknown]
  - Electric shock sensation [Unknown]
  - Pain [Unknown]
  - Movement disorder [Unknown]
  - Musculoskeletal discomfort [Unknown]
  - Polyarthritis [Unknown]
  - Bursitis [Unknown]
  - Inflammation [Unknown]
  - Limb discomfort [Unknown]
  - Drug intolerance [Unknown]
  - Deafness [Unknown]
  - Headache [Unknown]
  - Gait disturbance [Unknown]
  - Back pain [Unknown]
  - Adverse event [Unknown]
  - Joint swelling [Unknown]
  - Musculoskeletal stiffness [Unknown]

NARRATIVE: CASE EVENT DATE: 20240501
